FAERS Safety Report 5028868-9 (Version None)
Quarter: 2006Q2

REPORT INFORMATION
  Report Type: 
  Country: None (occurrence: None)
  Receive Date: 20060501
  Receipt Date: 20060303
  Transmission Date: 20061013
  Serious: No
  Sender: FDA-Public Use
  Company Number: 200612402US

PATIENT
  Sex: 0

DRUGS (1)
  1. KETEK [Suspect]
     Dosage: PO
     Route: 048

REACTIONS (6)
  - ABDOMINAL PAIN UPPER [None]
  - FLUSHING [None]
  - INFLUENZA LIKE ILLNESS [None]
  - NAUSEA [None]
  - VERTIGO [None]
  - VOMITING PROJECTILE [None]
